FAERS Safety Report 7803125-3 (Version None)
Quarter: 2011Q4

REPORT INFORMATION
  Report Type: 
  Country: None (occurrence: None)
  Receive Date: 20111007
  Receipt Date: 20111004
  Transmission Date: 20120403
  Serious: Yes (Death, Other)
  Sender: FDA-Public Use
  Company Number: PHHY2011US66635

PATIENT
  Age: 55 Year
  Sex: Male

DRUGS (1)
  1. FANAPT [Suspect]
     Dosage: 2 MG, BID
     Route: 048
     Dates: start: 20110714

REACTIONS (3)
  - CIRCULATORY COLLAPSE [None]
  - MYOCARDIAL INFARCTION [None]
  - ROAD TRAFFIC ACCIDENT [None]
